FAERS Safety Report 5555105-9 (Version None)
Quarter: 2007Q4

REPORT INFORMATION
  Report Type: 
  Country: None (occurrence: None)
  Receive Date: 20071213
  Receipt Date: 20070809
  Transmission Date: 20080405
  Serious: No
  Sender: FDA-Public Use
  Company Number: US-AMGEN-KDL236691

PATIENT
  Sex: Male

DRUGS (9)
  1. ENBREL [Suspect]
     Indication: PSORIASIS
     Route: 058
     Dates: start: 20070528, end: 20070711
  2. LISINOPRIL [Concomitant]
  3. METOPROLOL [Concomitant]
  4. IBUPROFEN [Concomitant]
  5. TRIAMCINOLONE [Concomitant]
  6. ADVAIR DISKUS 100/50 [Concomitant]
  7. GABAPENTIN [Concomitant]
  8. LYRICA [Concomitant]
  9. TOPRAL [Concomitant]

REACTIONS (4)
  - LOCALISED INFECTION [None]
  - PSORIASIS [None]
  - SKIN ULCER [None]
  - STAPHYLOCOCCAL INFECTION [None]
